FAERS Safety Report 23814224 (Version 1)
Quarter: 2024Q2

REPORT INFORMATION
  Report Type: Spontaneous
  Country: US (occurrence: None)
  Receive Date: 20240502
  Receipt Date: 20240502
  Transmission Date: 20240716
  Serious: Yes (Death)
  Sender: FDA-Public Use
  Company Number: None

PATIENT
  Age: 73 Year
  Sex: Female

DRUGS (18)
  1. OFEV [Suspect]
     Active Substance: NINTEDANIB
     Indication: Interstitial lung disease
     Dosage: FREQUENCY : TWICE A DAY;?
     Route: 048
     Dates: start: 20220719, end: 20240305
  2. SILDENAFIL [Concomitant]
     Active Substance: SILDENAFIL
  3. ALBUTEROL SULFATE [Concomitant]
     Active Substance: ALBUTEROL SULFATE
  4. MIRTAZAPINE [Concomitant]
     Active Substance: MIRTAZAPINE
  5. PREDNISONE [Concomitant]
     Active Substance: PREDNISONE
  6. ATROVENT [Concomitant]
     Active Substance: IPRATROPIUM BROMIDE
  7. STIOLTO RESPIMAT [Concomitant]
     Active Substance: OLODATEROL HYDROCHLORIDE\TIOTROPIUM BROMIDE MONOHYDRATE
  8. GABAPENTIN [Suspect]
     Active Substance: GABAPENTIN
  9. NARCAN [Concomitant]
     Active Substance: NALOXONE HYDROCHLORIDE
  10. OMEPRAZOLE [Concomitant]
     Active Substance: DONEPEZIL HYDROCHLORIDE\OMEPRAZOLE\OMEPRAZOLE MAGNESIUM
  11. PREDNISONE [Concomitant]
     Active Substance: PREDNISONE
  12. VITAMIN B12 [Concomitant]
     Active Substance: CYANOCOBALAMIN
  13. LOPERAMIDE [Concomitant]
     Active Substance: LOPERAMIDE
  14. ROSUVASTATIN [Concomitant]
     Active Substance: ROSUVASTATIN
  15. lisinpril [Concomitant]
  16. XARELTO [Concomitant]
     Active Substance: RIVAROXABAN
  17. DULOXETINE [Concomitant]
     Active Substance: DULOXETINE
  18. TRAZODONE [Concomitant]
     Active Substance: TRAZODONE HYDROCHLORIDE

REACTIONS (2)
  - Respiratory failure [None]
  - Terminal state [None]

NARRATIVE: CASE EVENT DATE: 20240302
